FAERS Safety Report 21841117 (Version 1)
Quarter: 2023Q1

REPORT INFORMATION
  Report Type: Spontaneous
  Country: US (occurrence: None)
  Receive Date: 20230110
  Receipt Date: 20230110
  Transmission Date: 20230418
  Serious: No
  Sender: FDA-Public Use
  Company Number: 2023A004256

PATIENT
  Age: 697 Month
  Sex: Male
  Weight: 47.6 kg

DRUGS (1)
  1. SYMBICORT [Suspect]
     Active Substance: BUDESONIDE\FORMOTEROL FUMARATE DIHYDRATE
     Indication: Emphysema
     Route: 055

REACTIONS (7)
  - Dyspnoea [Recovered/Resolved]
  - Off label use [Not Recovered/Not Resolved]
  - Device use issue [Recovered/Resolved]
  - Incorrect dose administered by device [Recovered/Resolved]
  - Wrong technique in device usage process [Unknown]
  - Device malfunction [Not Recovered/Not Resolved]
  - Drug dose omission by device [Recovered/Resolved]

NARRATIVE: CASE EVENT DATE: 20230101
